FAERS Safety Report 4403764-6 (Version None)
Quarter: 2004Q3

REPORT INFORMATION
  Report Type: 
  Country: None (occurrence: None)
  Receive Date: 20040719
  Receipt Date: 20040709
  Transmission Date: 20050211
  Serious: Yes (Hospitalization)
  Sender: FDA-Public Use
  Company Number: 2004S1000038

PATIENT
  Age: 81 Year
  Sex: Male

DRUGS (5)
  1. OXANDRIN [Suspect]
     Dosage: 10 MG; BID; PO
     Route: 048
     Dates: start: 20040508, end: 20040101
  2. ZANTAC [Concomitant]
  3. HYZAAR [Concomitant]
  4. LANOXIN [Concomitant]
  5. PLAVIX [Concomitant]

REACTIONS (1)
  - PNEUMONIA [None]
